FAERS Safety Report 25714752 (Version 1)
Quarter: 2025Q3

REPORT INFORMATION
  Report Type: Report from Study
  Country: US (occurrence: US)
  Receive Date: 20250822
  Receipt Date: 20250822
  Transmission Date: 20251020
  Serious: No
  Sender: SUNOVION
  Company Number: US-SMPA-2025SPA010562

PATIENT
  Age: 67 Year
  Sex: Male

DRUGS (9)
  1. ORGOVYX [Suspect]
     Active Substance: RELUGOLIX
     Indication: Prostate cancer
     Route: 048
  2. CALCIUM [Concomitant]
     Active Substance: CALCIUM
  3. IBUPROFEN [Concomitant]
     Active Substance: IBUPROFEN
  4. VITAMIN E [Concomitant]
     Active Substance: .ALPHA.-TOCOPHEROL
  5. FUROSEMIDE [Concomitant]
     Active Substance: FUROSEMIDE
  6. SODIUM [Concomitant]
     Active Substance: SODIUM
  7. TAMSULOSIN [Concomitant]
     Active Substance: TAMSULOSIN
  8. TRAZODONE [Concomitant]
     Active Substance: TRAZODONE HYDROCHLORIDE
  9. XTANDI [Concomitant]
     Active Substance: ENZALUTAMIDE

REACTIONS (3)
  - Tremor [Unknown]
  - Hot flush [Unknown]
  - Hyperhidrosis [Unknown]
